FAERS Safety Report 15676401 (Version 1)
Quarter: 2018Q4

REPORT INFORMATION
  Report Type: Spontaneous
  Country: FR (occurrence: FR)
  Receive Date: 20181130
  Receipt Date: 20181130
  Transmission Date: 20190205
  Serious: Yes (Hospitalization, Other)
  Sender: FDA-Public Use
  Company Number: FR-SA-2018SA163467

PATIENT
  Age: 16 Year
  Sex: Male

DRUGS (3)
  1. HYDROCORTISONE. [Suspect]
     Active Substance: HYDROCORTISONE
     Indication: ACNE
     Dosage: 20 MG
     Route: 048
     Dates: start: 20171118
  2. CURACNE [Suspect]
     Active Substance: ISOTRETINOIN
     Indication: ACNE
     Route: 048
     Dates: start: 20170809, end: 20171219
  3. ERYTHROMYCINE [ERYTHROMYCIN] [Suspect]
     Active Substance: ERYTHROMYCIN
     Indication: ACNE
     Route: 048
     Dates: start: 20171118, end: 20171219

REACTIONS (1)
  - Hepatitis acute [Recovered/Resolved]

NARRATIVE: CASE EVENT DATE: 20171219
